APPROVED DRUG PRODUCT: PROLIXIN DECANOATE
Active Ingredient: FLUPHENAZINE DECANOATE
Strength: 25MG/ML **Federal Register determination that product was not discontinued or withdrawn for safety or effectiveness reasons**
Dosage Form/Route: INJECTABLE;INJECTION
Application: N016727 | Product #001
Applicant: BRISTOL MYERS SQUIBB CO
Approved: Approved Prior to Jan 1, 1982 | RLD: Yes | RS: No | Type: DISCN